FAERS Safety Report 8223434-6 (Version None)
Quarter: 2012Q1

REPORT INFORMATION
  Report Type: 
  Country: None (occurrence: None)
  Receive Date: 20120321
  Receipt Date: 20120309
  Transmission Date: 20120608
  Serious: Yes (Hospitalization, Other)
  Sender: FDA-Public Use
  Company Number: CA-ELI_LILLY_AND_COMPANY-CA201202007562

PATIENT
  Age: 67 Year
  Sex: Female

DRUGS (12)
  1. METOPROLOL SUCCINATE [Concomitant]
  2. ASPIRIN [Concomitant]
  3. RAMIPRIL [Concomitant]
  4. VITAMIN D [Concomitant]
  5. EZETIMIBE [Concomitant]
  6. CRESTOR [Concomitant]
  7. VITAMIN E [Concomitant]
  8. FORTEO [Suspect]
     Indication: OSTEOPOROSIS
     Dosage: 20 UG, QD
     Route: 058
     Dates: start: 20111103, end: 20120225
  9. FORTEO [Suspect]
     Dosage: 20 UG, QD
     Route: 058
     Dates: start: 20120307
  10. CALCIUM CARBONATE [Concomitant]
  11. PANTOPRAZOLE SODIUM [Concomitant]
  12. MAGNESIUM [Concomitant]

REACTIONS (10)
  - PANCREATITIS [None]
  - ANGINA PECTORIS [None]
  - DIZZINESS [None]
  - DYSPEPSIA [None]
  - CHEST PAIN [None]
  - GASTROOESOPHAGEAL REFLUX DISEASE [None]
  - INAPPROPRIATE SCHEDULE OF DRUG ADMINISTRATION [None]
  - GASTRITIS [None]
  - ABDOMINAL DISTENSION [None]
  - NAUSEA [None]
